FAERS Safety Report 4875055-0 (Version None)
Quarter: 2006Q1

REPORT INFORMATION
  Report Type: 
  Country: None (occurrence: None)
  Receive Date: 20060109
  Receipt Date: 20060103
  Transmission Date: 20060701
  Serious: Yes (Life-Threatening, Other)
  Sender: FDA-Public Use
  Company Number: FR-JNJFOC-20060100522

PATIENT
  Age: 55 Year
  Sex: Male

DRUGS (10)
  1. LEVOFLOXACIN [Suspect]
     Route: 048
     Dates: start: 20051023, end: 20051113
  2. TRAMADOL HCL [Suspect]
     Indication: PAIN
     Route: 048
  3. FORTUM [Suspect]
     Route: 042
  4. POSACONAZOLE [Suspect]
     Route: 048
  5. LAROXYL [Suspect]
     Indication: PAIN
     Route: 048
  6. NEURONTIN [Suspect]
     Indication: PAIN
     Route: 048
  7. XANAX [Suspect]
     Indication: ANXIETY
     Route: 048
  8. EFFEXOR [Suspect]
     Indication: DEPRESSION
     Route: 048
  9. NEXIUM [Concomitant]
     Indication: PROPHYLAXIS
     Route: 048
  10. HEPARIN [Concomitant]
     Indication: PROPHYLAXIS

REACTIONS (3)
  - CANDIDIASIS [None]
  - CYTOLYTIC HEPATITIS [None]
  - RENAL FAILURE [None]
